FAERS Safety Report 22309788 (Version 1)
Quarter: 2023Q2

REPORT INFORMATION
  Report Type: Spontaneous
  Country: US (occurrence: None)
  Receive Date: 20230510
  Receipt Date: 20230510
  Transmission Date: 20230722
  Serious: Yes (unspecified)
  Sender: FDA-Public Use
  Company Number: None

PATIENT
  Age: 72 Year
  Sex: Male
  Weight: 97.5 kg

DRUGS (1)
  1. ROCURONIUM BROMIDE [Suspect]
     Active Substance: ROCURONIUM BROMIDE
     Indication: Anaesthesia
     Dosage: FREQUENCY : DAILY;?
     Route: 040
     Dates: start: 20230510, end: 20230510

REACTIONS (3)
  - Product quality issue [None]
  - Anaesthetic complication [None]
  - Drug ineffective [None]

NARRATIVE: CASE EVENT DATE: 20230510
